FAERS Safety Report 16077516 (Version 2)
Quarter: 2019Q1

REPORT INFORMATION
  Report Type: Spontaneous
  Country: JP (occurrence: JP)
  Receive Date: 20190315
  Receipt Date: 20190328
  Transmission Date: 20190418
  Serious: No
  Sender: FDA-Public Use
  Company Number: JP-TEVA-2019-JP-001530J

PATIENT

DRUGS (3)
  1. CONSTAN 0.4MG.TABLETS [Suspect]
     Active Substance: ALPRAZOLAM
     Indication: PRODUCT USED FOR UNKNOWN INDICATION
     Route: 048
  2. RENIVACE [Concomitant]
     Active Substance: ENALAPRIL
     Route: 065
  3. AMLODIN [Concomitant]
     Active Substance: AMLODIPINE BESYLATE
     Route: 065

REACTIONS (3)
  - Wrong technique in product usage process [Unknown]
  - Heart rate irregular [Unknown]
  - Tachycardia [Unknown]
